FAERS Safety Report 10238336 (Version 3)
Quarter: 2014Q4

REPORT INFORMATION
  Report Type: Spontaneous
  Country: US (occurrence: US)
  Receive Date: 20140616
  Receipt Date: 20141003
  Transmission Date: 20150528
  Serious: No
  Sender: FDA-Public Use
  Company Number: US-PFIZER INC-2014163949

PATIENT
  Age: 26 Year
  Sex: Male
  Weight: 81.63 kg

DRUGS (4)
  1. GEODON [Suspect]
     Active Substance: ZIPRASIDONE HYDROCHLORIDE\ZIPRASIDONE MESYLATE
     Indication: ANXIETY
     Dosage: 40 MG, DAILY AT BEDTIME
     Dates: start: 201401, end: 2014
  2. SINGULAIR [Concomitant]
     Active Substance: MONTELUKAST SODIUM
     Indication: ASTHMA
     Dosage: 10 MG, DAILY
  3. GEODON [Suspect]
     Active Substance: ZIPRASIDONE HYDROCHLORIDE\ZIPRASIDONE MESYLATE
     Indication: HALLUCINATION, AUDITORY
     Dosage: INCREASED
     Dates: start: 2014
  4. GEODON [Suspect]
     Active Substance: ZIPRASIDONE HYDROCHLORIDE\ZIPRASIDONE MESYLATE
     Indication: BIPOLAR DISORDER

REACTIONS (13)
  - General physical health deterioration [Not Recovered/Not Resolved]
  - Dry mouth [Unknown]
  - Malnutrition [Unknown]
  - Eye pain [Unknown]
  - Skin odour abnormal [Unknown]
  - General physical condition abnormal [Unknown]
  - Peripheral swelling [Unknown]
  - Nasal dryness [Unknown]
  - Nausea [Recovered/Resolved]
  - Insomnia [Unknown]
  - Hunger [Unknown]
  - Dry throat [Unknown]
  - Eye disorder [Unknown]

NARRATIVE: CASE EVENT DATE: 2014
